FAERS Safety Report 4963019-8 (Version None)
Quarter: 2006Q2

REPORT INFORMATION
  Report Type: 
  Country: None (occurrence: None)
  Receive Date: 20060405
  Receipt Date: 20060328
  Transmission Date: 20061013
  Serious: Yes (Other)
  Sender: FDA-Public Use
  Company Number: US-JNJFOC-20060307300

PATIENT
  Age: 45 Year
  Sex: Female

DRUGS (3)
  1. ARESTIN [Suspect]
     Indication: PERIODONTITIS
  2. IRON [Concomitant]
  3. FOLIC ACID [Concomitant]

REACTIONS (2)
  - OEDEMA MOUTH [None]
  - ORAL MUCOSAL BLISTERING [None]
